FAERS Safety Report 10794259 (Version 2)
Quarter: 2015Q1

REPORT INFORMATION
  Report Type: Spontaneous
  Country: FR (occurrence: FR)
  Receive Date: 20150213
  Receipt Date: 20150227
  Transmission Date: 20150721
  Serious: Yes (Hospitalization)
  Sender: FDA-Public Use
  Company Number: FR-PFIZER INC-2015051251

PATIENT
  Age: 63 Year
  Sex: Male

DRUGS (9)
  1. TARDYFERON [Suspect]
     Active Substance: FERROUS SULFATE\FOLIC ACID
  2. LEVOTHYROX [Suspect]
     Active Substance: LEVOTHYROXINE
  3. EUPRESSYL [Suspect]
     Active Substance: URAPIDIL
  4. KARDEGIC [Suspect]
     Active Substance: ASPIRIN LYSINE
     Route: 048
  5. TENORMIN [Suspect]
     Active Substance: ATENOLOL
  6. TAHOR [Suspect]
     Active Substance: ATORVASTATIN CALCIUM
     Route: 048
  7. LOXEN [Suspect]
     Active Substance: NICARDIPINE HYDROCHLORIDE
  8. COUMADINE [Suspect]
     Active Substance: WARFARIN SODIUM
  9. LASILIX [Suspect]
     Active Substance: FUROSEMIDE

REACTIONS (3)
  - Rhabdomyolysis [Unknown]
  - Subdural haemorrhage [Unknown]
  - Fall [Unknown]

NARRATIVE: CASE EVENT DATE: 20130604
